FAERS Safety Report 8608389-4 (Version None)
Quarter: 2012Q3

REPORT INFORMATION
  Report Type: 
  Country: None (occurrence: None)
  Receive Date: 20120821
  Receipt Date: 20120817
  Transmission Date: 20120928
  Serious: Yes (Hospitalization, Other)
  Sender: FDA-Public Use
  Company Number: US-ROCHE-1082321

PATIENT
  Sex: Male

DRUGS (3)
  1. PEGASYS [Suspect]
     Indication: HEPATITIS C
     Dates: start: 20120514, end: 20120730
  2. COPEGUS [Suspect]
     Indication: HEPATITIS C
     Dates: end: 20120730
  3. TELAPREVIR [Suspect]
     Indication: HEPATITIS C
     Dates: end: 20120730

REACTIONS (8)
  - CONFUSIONAL STATE [None]
  - LOSS OF CONSCIOUSNESS [None]
  - DISORIENTATION [None]
  - RASH PRURITIC [None]
  - DYSPNOEA [None]
  - MALAISE [None]
  - HYPERSOMNIA [None]
  - BURNING SENSATION [None]
